FAERS Safety Report 11268300 (Version 2)
Quarter: 2015Q3

REPORT INFORMATION
  Report Type: Spontaneous
  Country: US (occurrence: US)
  Receive Date: 20150714
  Receipt Date: 20150805
  Transmission Date: 20151125
  Serious: Yes (Hospitalization)
  Sender: FDA-Public Use
  Company Number: US-JNJFOC-20150614663

PATIENT
  Age: 70 Year
  Sex: Male

DRUGS (9)
  1. XARELTO [Suspect]
     Active Substance: RIVAROXABAN
     Indication: CEREBROVASCULAR ACCIDENT PROPHYLAXIS
     Route: 048
     Dates: start: 20120120, end: 20130506
  2. XARELTO [Suspect]
     Active Substance: RIVAROXABAN
     Indication: ATRIAL FIBRILLATION
     Route: 048
     Dates: start: 20120120, end: 20130506
  3. ALFUZOSIN [Concomitant]
     Active Substance: ALFUZOSIN
     Route: 065
     Dates: start: 2010
  4. XARELTO [Suspect]
     Active Substance: RIVAROXABAN
     Indication: THROMBOSIS PROPHYLAXIS
     Route: 048
     Dates: start: 20120120, end: 20130506
  5. XARELTO [Suspect]
     Active Substance: RIVAROXABAN
     Indication: THROMBOSIS PROPHYLAXIS
     Route: 048
     Dates: start: 20120120, end: 20130506
  6. XARELTO [Suspect]
     Active Substance: RIVAROXABAN
     Indication: THROMBOSIS PROPHYLAXIS
     Route: 048
     Dates: start: 20120120, end: 20130506
  7. LOSARTAN POTASSIUM/HYDROCHLORTHIAZIDE [Concomitant]
     Route: 065
     Dates: start: 2012
  8. BYSTOLIC [Concomitant]
     Active Substance: NEBIVOLOL HYDROCHLORIDE
     Route: 065
     Dates: start: 2010
  9. ULORIC [Concomitant]
     Active Substance: FEBUXOSTAT
     Route: 065
     Dates: start: 2010

REACTIONS (3)
  - Internal haemorrhage [Recovered/Resolved]
  - Contusion [Recovered/Resolved]
  - Gastrointestinal haemorrhage [Recovered/Resolved]

NARRATIVE: CASE EVENT DATE: 20130703
